APPROVED DRUG PRODUCT: ROWASA
Active Ingredient: MESALAMINE
Strength: 500MG **Federal Register determination that product was not discontinued or withdrawn for safety or effectiveness reasons**
Dosage Form/Route: SUPPOSITORY;RECTAL
Application: N019919 | Product #001
Applicant: MEDA PHARMACEUTICALS INC
Approved: Dec 18, 1990 | RLD: Yes | RS: No | Type: DISCN